FAERS Safety Report 15225243 (Version 1)
Quarter: 2018Q3

REPORT INFORMATION
  Report Type: Spontaneous
  Country: GR (occurrence: GR)
  Receive Date: 20180801
  Receipt Date: 20180801
  Transmission Date: 20181010
  Serious: Yes (Other)
  Sender: FDA-Public Use
  Company Number: GR-BIOGEN-2018BI00613678

PATIENT
  Age: 26 Year
  Sex: Female

DRUGS (1)
  1. TYSABRI [Suspect]
     Active Substance: NATALIZUMAB
     Indication: RELAPSING-REMITTING MULTIPLE SCLEROSIS
     Route: 065
     Dates: start: 201402

REACTIONS (6)
  - Ureaplasma infection [Recovered/Resolved]
  - Bacterial vaginosis [Recovered/Resolved]
  - Escherichia vaginitis [Recovered/Resolved]
  - Vulvovaginal candidiasis [Recovered/Resolved]
  - Dyspareunia [Unknown]
  - Pneumonia klebsiella [Recovered/Resolved]

NARRATIVE: CASE EVENT DATE: 201405
